FAERS Safety Report 5945333-2 (Version None)
Quarter: 2008Q4

REPORT INFORMATION
  Report Type: 
  Country: None (occurrence: None)
  Receive Date: 20081107
  Receipt Date: 20081030
  Transmission Date: 20090506
  Serious: Yes (Hospitalization)
  Sender: FDA-Public Use
  Company Number: JP-PFIZER INC-2008093738

PATIENT
  Age: 77 Year
  Sex: Male

DRUGS (1)
  1. AMLODIN [Suspect]
     Indication: HYPERTENSION
     Dosage: DAILY DOSE:5MG
     Route: 048

REACTIONS (1)
  - INTERSTITIAL LUNG DISEASE [None]
